FAERS Safety Report 19063143 (Version 4)
Quarter: 2022Q3

REPORT INFORMATION
  Report Type: Spontaneous
  Country: JP (occurrence: JP)
  Receive Date: 20210326
  Receipt Date: 20220714
  Transmission Date: 20221026
  Serious: Yes (Death, Other)
  Sender: FDA-Public Use
  Company Number: JP-GSKJP-JP2021JPN066514AA

PATIENT

DRUGS (14)
  1. DAPRODUSTAT [Suspect]
     Active Substance: DAPRODUSTAT
     Indication: Nephrogenic anaemia
     Dosage: 4 MG, QD, IN THE MORNING
     Route: 048
     Dates: start: 20201209
  2. DUTASTERIDE [Suspect]
     Active Substance: DUTASTERIDE
     Dosage: 0.5 MG, QD
     Route: 048
  3. URINORM (BENZBROMARONE) [Concomitant]
     Dosage: 1T(50), QD
     Route: 048
  4. SILODOSIN [Concomitant]
     Active Substance: SILODOSIN
     Dosage: 1T(4), BID
     Route: 048
  5. MICARDIS [Concomitant]
     Active Substance: TELMISARTAN
     Dosage: 1T(40), QD
     Route: 048
  6. ADALAT CC [Concomitant]
     Active Substance: NIFEDIPINE
     Dosage: 1T(40) , QD
     Route: 048
  7. ADALAT CC [Concomitant]
     Active Substance: NIFEDIPINE
     Dosage: UNK UNK, QD
     Route: 048
  8. ASPIRIN [Concomitant]
     Active Substance: ASPIRIN
     Dosage: 1T(100) , QD
     Route: 048
  9. EFIENT (PRASUGREL HYDROCHLORIDE) [Concomitant]
     Dosage: 1 DF, QD
     Route: 048
  10. CRESTOR [Concomitant]
     Active Substance: ROSUVASTATIN CALCIUM
     Dosage: 1T(2.5), QD
     Route: 048
  11. MIRABEGRON [Concomitant]
     Active Substance: MIRABEGRON
     Dosage: 1DF(50), QD
     Route: 048
  12. KREMEZIN [Concomitant]
     Active Substance: ACTIVATED CHARCOAL
     Indication: Nephrogenic anaemia
     Dosage: 2 G, QD
     Route: 048
  13. FENTANYL [Concomitant]
     Active Substance: FENTANYL
     Dosage: (2.1MG) 1 SHEET EVERY 3 DAYS
     Dates: start: 20201207
  14. FUROSEMIDE [Concomitant]
     Active Substance: FUROSEMIDE
     Dosage: UNK

REACTIONS (22)
  - Myocardial infarction [Fatal]
  - Cardiac failure acute [Unknown]
  - Cardiac failure chronic [Unknown]
  - Pulmonary oedema [Unknown]
  - Angina unstable [Unknown]
  - Chronic kidney disease [Unknown]
  - Hypertension [Unknown]
  - Hyperuricaemia [Unknown]
  - Generalised oedema [Unknown]
  - Testicular oedema [Unknown]
  - Weight increased [Unknown]
  - Bedridden [Unknown]
  - Mental disorder [Unknown]
  - Blood pressure increased [Unknown]
  - Oedema peripheral [Unknown]
  - Gait disturbance [Unknown]
  - Varicose vein [Unknown]
  - Skin discolouration [Unknown]
  - Blood creatinine increased [Unknown]
  - Brain natriuretic peptide increased [Unknown]
  - Nephrogenic anaemia [Unknown]
  - Product preparation issue [Unknown]

NARRATIVE: CASE EVENT DATE: 20201218
